FAERS Safety Report 10553539 (Version 2)
Quarter: 2014Q4

REPORT INFORMATION
  Report Type: Spontaneous
  Country: BR (occurrence: BR)
  Receive Date: 20141030
  Receipt Date: 20141030
  Transmission Date: 20150529
  Serious: Yes (Death)
  Sender: FDA-Public Use
  Company Number: BR-PFIZER INC-2014044374

PATIENT
  Age: 73 Year
  Sex: Female

DRUGS (1)
  1. SUTENT [Suspect]
     Active Substance: SUNITINIB MALATE
     Indication: RENAL CELL CARCINOMA
     Dosage: 50 MG (1 CAPSULE), ONCE DAILY, CYCLIC (4X2)
     Route: 048
     Dates: start: 20140206, end: 20140907

REACTIONS (8)
  - Cardiac arrest [Fatal]
  - Skin exfoliation [Unknown]
  - Disease progression [Fatal]
  - Pruritus [Unknown]
  - Oral pain [Unknown]
  - Renal cell carcinoma [Fatal]
  - Pyrexia [Unknown]
  - Nasal dryness [Unknown]

NARRATIVE: CASE EVENT DATE: 2014
